FAERS Safety Report 17662691 (Version 6)
Quarter: 2023Q2

REPORT INFORMATION
  Report Type: Spontaneous
  Country: US (occurrence: US)
  Receive Date: 20200413
  Receipt Date: 20230406
  Transmission Date: 20230722
  Serious: Yes (Hospitalization, Disabling, Other)
  Sender: FDA-Public Use
  Company Number: US-PURDUE-USA-2020-0151641

PATIENT
  Sex: Female
  Weight: 66.667 kg

DRUGS (17)
  1. OXYCONTIN [Suspect]
     Active Substance: OXYCODONE HYDROCHLORIDE
     Indication: Arthritis
     Dosage: (20MG) 1 TABLET, Q12H
     Route: 048
     Dates: start: 1996
  2. OXYCONTIN [Suspect]
     Active Substance: OXYCODONE HYDROCHLORIDE
     Indication: Pain
     Dosage: (20MG) 1 TABLET, TID
     Route: 048
     Dates: end: 20190527
  3. OXYCONTIN [Suspect]
     Active Substance: OXYCODONE HYDROCHLORIDE
     Indication: Rheumatoid arthritis
     Dosage: 40 MG, BID
     Route: 048
     Dates: start: 1996, end: 20190527
  4. OXYCONTIN [Suspect]
     Active Substance: OXYCODONE HYDROCHLORIDE
     Dosage: 80 MG, DAILY
     Route: 048
     Dates: start: 1996, end: 20190527
  5. ACETAMINOPHEN\OXYCODONE HYDROCHLORIDE\OXYCODONE TEREPHTHALATE [Suspect]
     Active Substance: ACETAMINOPHEN\OXYCODONE HYDROCHLORIDE\OXYCODONE TEREPHTHALATE
     Indication: Arthritis
     Dosage: (5MG/325MG) 1 TABLET, PRN (EVERY 4 TO 6 HOURS)
     Route: 048
     Dates: end: 20190527
  6. ACETAMINOPHEN\OXYCODONE HYDROCHLORIDE\OXYCODONE TEREPHTHALATE [Suspect]
     Active Substance: ACETAMINOPHEN\OXYCODONE HYDROCHLORIDE\OXYCODONE TEREPHTHALATE
     Indication: Pain
  7. ACETAMINOPHEN\OXYCODONE HYDROCHLORIDE\OXYCODONE TEREPHTHALATE [Suspect]
     Active Substance: ACETAMINOPHEN\OXYCODONE HYDROCHLORIDE\OXYCODONE TEREPHTHALATE
     Indication: Rheumatoid arthritis
  8. ACETAMINOPHEN\OXYCODONE HYDROCHLORIDE\OXYCODONE TEREPHTHALATE [Suspect]
     Active Substance: ACETAMINOPHEN\OXYCODONE HYDROCHLORIDE\OXYCODONE TEREPHTHALATE
     Indication: Anxiety
  9. GABAPENTIN [Suspect]
     Active Substance: GABAPENTIN
     Indication: Pain
     Dosage: 1 TABLET, TID
     Route: 048
  10. GABAPENTIN [Suspect]
     Active Substance: GABAPENTIN
     Indication: Anxiety
  11. CORTISONE [Suspect]
     Active Substance: CORTISONE
     Indication: Pain
     Dosage: UNKNOWN
     Route: 065
  12. CORTISONE [Suspect]
     Active Substance: CORTISONE
     Indication: Arthritis
  13. METHOTREXATE [Suspect]
     Active Substance: METHOTREXATE
     Indication: Arthritis
     Dosage: UNKNOWN
     Route: 065
  14. METHOTREXATE [Suspect]
     Active Substance: METHOTREXATE
     Indication: Rheumatoid arthritis
  15. TYLENOL [Suspect]
     Active Substance: ACETAMINOPHEN
     Indication: Pain management
     Dosage: 325 MG, DAILY (9 TABLETS)
     Route: 048
  16. TYLENOL [Suspect]
     Active Substance: ACETAMINOPHEN
     Indication: Arthritis
  17. HUMIRA [Suspect]
     Active Substance: ADALIMUMAB
     Indication: Product used for unknown indication
     Dosage: UNKNOWN
     Route: 065
     Dates: end: 2005

REACTIONS (23)
  - Hospitalisation [Unknown]
  - Disability [Unknown]
  - Drug dependence [Recovered/Resolved]
  - Dementia [Unknown]
  - Mental impairment [Not Recovered/Not Resolved]
  - Impaired work ability [Unknown]
  - Generalised tonic-clonic seizure [Unknown]
  - Deafness [Not Recovered/Not Resolved]
  - Myocardial infarction [Unknown]
  - Amnesia [Not Recovered/Not Resolved]
  - Seizure [Unknown]
  - Brain injury [Unknown]
  - Dry mouth [Unknown]
  - Learning disability [Not Recovered/Not Resolved]
  - Nerve injury [Not Recovered/Not Resolved]
  - Euphoric mood [Unknown]
  - Anxiety [Unknown]
  - Tremor [Not Recovered/Not Resolved]
  - Back injury [Unknown]
  - Drug ineffective [Unknown]
  - Hypertension [Unknown]
  - Depression [Unknown]
  - Weight decreased [Unknown]

NARRATIVE: CASE EVENT DATE: 20050101
